FAERS Safety Report 10137339 (Version 1)
Quarter: 2014Q2

REPORT INFORMATION
  Report Type: Spontaneous
  Country: US (occurrence: None)
  Receive Date: 20140428
  Receipt Date: 20140428
  Transmission Date: 20141212
  Serious: Yes (Other)
  Sender: FDA-Public Use
  Company Number: None

PATIENT
  Age: 60 Year
  Sex: Female
  Weight: 63.5 kg

DRUGS (5)
  1. AUBAGIO [Suspect]
  2. BACLOFEN [Concomitant]
  3. GABAPENTIN [Concomitant]
  4. LOSARTAN [Suspect]
  5. CHLOROTHALIDONE [Concomitant]

REACTIONS (2)
  - Skin ulcer [None]
  - Impaired healing [None]
